FAERS Safety Report 5486100-6 (Version None)
Quarter: 2007Q4

REPORT INFORMATION
  Report Type: 
  Country: None (occurrence: None)
  Receive Date: 20071015
  Receipt Date: 20071003
  Transmission Date: 20080405
  Serious: Yes (Other)
  Sender: FDA-Public Use
  Company Number: US-PFIZER INC-2007083656

PATIENT
  Sex: Female
  Weight: 133.8 kg

DRUGS (11)
  1. LYRICA [Suspect]
     Indication: PAIN
     Dates: start: 20071003, end: 20071003
  2. CYMBALTA [Concomitant]
  3. CLONAZEPAM [Concomitant]
  4. TRICOR [Concomitant]
  5. PHENTERMINE [Concomitant]
  6. DIOVAN HCT [Concomitant]
     Dosage: TEXT:320/25 MG.
  7. FUROSEMIDE [Concomitant]
  8. LIPITOR [Concomitant]
  9. OXYCODONE HCL [Concomitant]
  10. WELLBUTRIN [Concomitant]
  11. ACTOS [Concomitant]

REACTIONS (1)
  - ANOREXIA [None]
